FAERS Safety Report 5766652-9 (Version None)
Quarter: 2008Q2

REPORT INFORMATION
  Report Type: 
  Country: None (occurrence: None)
  Receive Date: 20080609
  Receipt Date: 20080605
  Transmission Date: 20081010
  Serious: Yes (Life-Threatening, Hospitalization)
  Sender: FDA-Public Use
  Company Number: AE-2008-004

PATIENT
  Age: 29 Year
  Sex: Female

DRUGS (2)
  1. HYDROXYCHLOROQUINE SULFATE [Suspect]
     Indication: SJOGREN'S SYNDROME
     Dosage: 200MG BD ORALLY
     Route: 048
  2. GABAPENTIN [Suspect]
     Indication: POST HERPETIC NEURALGIA
     Dosage: 300MG TID ORALLY
     Route: 048

REACTIONS (4)
  - ANOREXIA [None]
  - DYSURIA [None]
  - LETHARGY [None]
  - TOXIC EPIDERMAL NECROLYSIS [None]
